FAERS Safety Report 16151313 (Version 2)
Quarter: 2019Q2

REPORT INFORMATION
  Report Type: Report from Study
  Country: US (occurrence: US)
  Receive Date: 20190403
  Receipt Date: 20190410
  Transmission Date: 20190711
  Serious: Yes (Other)
  Sender: FDA-Public Use
  Company Number: US-SA-2019SA086506

PATIENT
  Age: 63 Year
  Sex: Female

DRUGS (2)
  1. INSULIN GLARGINE [Suspect]
     Active Substance: INSULIN GLARGINE
     Indication: TYPE 2 DIABETES MELLITUS
     Dosage: 28 U, BID
     Route: 058
  2. INSULIN GLARGINE [Suspect]
     Active Substance: INSULIN GLARGINE
     Dosage: 30 U, BID
     Route: 058

REACTIONS (5)
  - Inappropriate schedule of product administration [Unknown]
  - Dementia Alzheimer^s type [Unknown]
  - Product dose omission [Unknown]
  - Device use issue [Unknown]
  - Disability [Not Recovered/Not Resolved]
